FAERS Safety Report 5045477-6 (Version None)
Quarter: 2006Q2

REPORT INFORMATION
  Report Type: 
  Country: None (occurrence: None)
  Receive Date: 20060601
  Receipt Date: 20060315
  Transmission Date: 20061013
  Serious: No
  Sender: FDA-Public Use
  Company Number: 2006-BP-02936BP

PATIENT
  Age: 68 Year
  Sex: Female

DRUGS (9)
  1. SPIRIVA [Suspect]
     Indication: CHRONIC OBSTRUCTIVE PULMONARY DISEASE
     Dosage: 18 MCG (18 MCG, 1 IN 1 D), IH
     Route: 055
  2. DUONEB (COMBIVENT /01261001/ ) [Concomitant]
  3. SINGULAIR [Concomitant]
  4. COMBIVENT (COMBIVENT /01261001/ ) [Concomitant]
  5. ALBUTEROL [Concomitant]
  6. ESTRADIOL [Concomitant]
  7. CAPTOPRIL [Concomitant]
  8. PREDNISONE TAB [Concomitant]
  9. OXYGEN (OXYGEN) [Concomitant]

REACTIONS (2)
  - NECK PAIN [None]
  - PAIN [None]
